FAERS Safety Report 11068813 (Version 3)
Quarter: 2015Q2

REPORT INFORMATION
  Report Type: Report from Study
  Country: US (occurrence: US)
  Receive Date: 20150427
  Receipt Date: 20150624
  Transmission Date: 20150821
  Serious: Yes (Hospitalization)
  Sender: FDA-Public Use
  Company Number: US-BIOGENIDEC-2015BI053057

PATIENT
  Age: 49 Year
  Sex: Female

DRUGS (1)
  1. TYSABRI [Suspect]
     Active Substance: NATALIZUMAB
     Indication: MULTIPLE SCLEROSIS
     Route: 042
     Dates: start: 20121231

REACTIONS (14)
  - Blood potassium decreased [Not Recovered/Not Resolved]
  - Urticaria [Recovered/Resolved]
  - Chest pain [Recovered/Resolved]
  - Diabetes mellitus [Not Recovered/Not Resolved]
  - Pain [Unknown]
  - Stress [Recovered/Resolved]
  - Throat irritation [Recovered/Resolved]
  - Primary hyperaldosteronism [Not Recovered/Not Resolved]
  - Eye swelling [Recovered/Resolved]
  - Acute kidney injury [Not Recovered/Not Resolved]
  - Pyrexia [Recovered/Resolved]
  - Hypotension [Not Recovered/Not Resolved]
  - Aphagia [Recovered/Resolved]
  - Rash [Recovered/Resolved]

NARRATIVE: CASE EVENT DATE: 20150305
